FAERS Safety Report 6473316-5 (Version None)
Quarter: 2009Q4

REPORT INFORMATION
  Report Type: 
  Country: None (occurrence: None)
  Receive Date: 20091204
  Receipt Date: 20080905
  Transmission Date: 20100525
  Serious: Yes (Hospitalization)
  Sender: FDA-Public Use
  Company Number: FR-ELI_LILLY_AND_COMPANY-FR200809001215

PATIENT
  Sex: Female
  Weight: 55 kg

DRUGS (3)
  1. GEMZAR [Suspect]
     Dosage: 1540 MG, UNK
     Route: 042
     Dates: start: 20080619
  2. GEMZAR [Suspect]
     Dosage: 1155 MG, UNKNOWN
     Route: 042
     Dates: start: 20080710
  3. GEMZAR [Suspect]
     Dosage: 40% OF 1170MG
     Route: 042
     Dates: start: 20080724, end: 20080724

REACTIONS (2)
  - HAEMOLYTIC ANAEMIA [None]
  - THROMBOCYTOPENIA [None]
